FAERS Safety Report 9049918 (Version 1)
Quarter: 2013Q1

REPORT INFORMATION
  Report Type: Spontaneous
  Country: US (occurrence: US)
  Receive Date: 20130205
  Receipt Date: 20130205
  Transmission Date: 20140127
  Serious: Yes (Other)
  Sender: FDA-Public Use
  Company Number: US-ASTRAZENECA-2013SE05394

PATIENT
  Sex: 0

DRUGS (2)
  1. NEXIUM [Suspect]
     Route: 048
  2. UNKNOWN [Concomitant]

REACTIONS (2)
  - Brain cancer metastatic [Unknown]
  - Lung neoplasm malignant [Unknown]
